FAERS Safety Report 16445012 (Version 1)
Quarter: 2019Q2

REPORT INFORMATION
  Report Type: Spontaneous
  Country: US (occurrence: US)
  Receive Date: 20190618
  Receipt Date: 20190618
  Transmission Date: 20190711
  Serious: Yes (Other)
  Sender: FDA-Public Use
  Company Number: US-OCTA-LIT03519US

PATIENT
  Age: 21 Year
  Sex: Male

DRUGS (1)
  1. HUMAN NORMAL IMMUNOGLOBULIN (IV) [Suspect]
     Active Substance: HUMAN IMMUNOGLOBULIN G
     Indication: THYROID DERMATOPATHY
     Dosage: OVER 3 CONSECUTIVE DAYS FOR 4-7 MONTHS
     Route: 042

REACTIONS (1)
  - Hypothyroidism [Unknown]
